FAERS Safety Report 6111940-X (Version None)
Quarter: 2009Q1

REPORT INFORMATION
  Report Type: 
  Country: None (occurrence: None)
  Receive Date: 20090311
  Receipt Date: 20090226
  Transmission Date: 20090719
  Serious: No
  Sender: FDA-Public Use
  Company Number: US-B.I. PHARMACEUTICALS,INC./RIDGEFIELD-2009-BP-02764BP

PATIENT
  Age: 26 Year
  Sex: Male

DRUGS (5)
  1. VIRAMUNE [Suspect]
     Indication: HIV INFECTION
  2. TRUVADA [Suspect]
  3. LORATADINE [Suspect]
  4. ATENOLOL [Suspect]
  5. BURPION [Suspect]

REACTIONS (1)
  - NIGHT SWEATS [None]
